FAERS Safety Report 6702144-8 (Version None)
Quarter: 2010Q2

REPORT INFORMATION
  Report Type: 
  Country: None (occurrence: None)
  Receive Date: 20100429
  Receipt Date: 20100422
  Transmission Date: 20101027
  Serious: Yes (Other)
  Sender: FDA-Public Use
  Company Number: PHHO2010US06376

PATIENT
  Sex: Female
  Weight: 88.6 kg

DRUGS (3)
  1. AFINITOR [Suspect]
     Indication: METASTATIC NEOPLASM
     Dosage: UNK
     Route: 048
     Dates: start: 20100414
  2. CARBOPLATIN COMP-CAB+ [Suspect]
     Indication: METASTATIC NEOPLASM
     Dosage: UNK
     Route: 048
     Dates: start: 20100414
  3. PACLITAXEL COMP-PAC+ [Suspect]
     Indication: METASTATIC NEOPLASM
     Dosage: UNK
     Route: 048
     Dates: start: 20100414

REACTIONS (1)
  - NEUTROPHIL COUNT DECREASED [None]
